FAERS Safety Report 13145414 (Version 11)
Quarter: 2020Q2

REPORT INFORMATION
  Report Type: Spontaneous
  Country: US (occurrence: US)
  Receive Date: 20170124
  Receipt Date: 20200519
  Transmission Date: 20200713
  Serious: No
  Sender: FDA-Public Use
  Company Number: US-PFIZER INC-2017030121

PATIENT
  Age: 58 Year
  Sex: Female
  Weight: 55 kg

DRUGS (3)
  1. LYRICA [Suspect]
     Active Substance: PREGABALIN
     Indication: NEURALGIA
     Dosage: 100 MG, 3X/DAY
  2. LYRICA [Suspect]
     Active Substance: PREGABALIN
     Indication: FIBROMYALGIA
     Dosage: 200 MG, 3X/DAY
     Route: 048
  3. LYRICA [Suspect]
     Active Substance: PREGABALIN
     Dosage: 200 MG, 3X/DAY
     Route: 048

REACTIONS (14)
  - Alopecia [Unknown]
  - Scoliosis [Not Recovered/Not Resolved]
  - Diffuse alopecia [Unknown]
  - Fatigue [Unknown]
  - Arthritis [Unknown]
  - Condition aggravated [Not Recovered/Not Resolved]
  - Mood altered [Unknown]
  - Musculoskeletal discomfort [Unknown]
  - Product dose omission [Unknown]
  - Impaired quality of life [Unknown]
  - Pain in extremity [Unknown]
  - Intentional product misuse [Unknown]
  - Pain [Not Recovered/Not Resolved]
  - Intervertebral disc disorder [Unknown]

NARRATIVE: CASE EVENT DATE: 2013
